FAERS Safety Report 5570210-9 (Version None)
Quarter: 2007Q4

REPORT INFORMATION
  Report Type: 
  Country: None (occurrence: None)
  Receive Date: 20071220
  Receipt Date: 20071210
  Transmission Date: 20080405
  Serious: Yes (Other)
  Sender: FDA-Public Use
  Company Number: BE-PFIZER INC-2007101427

PATIENT
  Sex: Male
  Weight: 75 kg

DRUGS (5)
  1. CHANTIX [Suspect]
     Indication: SMOKING CESSATION THERAPY
     Route: 048
     Dates: start: 20070914, end: 20071116
  2. SIMVASTATIN [Concomitant]
     Route: 048
  3. COVERSYL [Concomitant]
     Route: 048
  4. HALCION [Concomitant]
     Route: 048
  5. ACECLOFENAC [Concomitant]
     Route: 048

REACTIONS (5)
  - BRADYCARDIA [None]
  - FATIGUE [None]
  - HYPOTENSION [None]
  - PARAESTHESIA [None]
  - PERIPHERAL COLDNESS [None]
